FAERS Safety Report 6407069-3 (Version None)
Quarter: 2009Q4

REPORT INFORMATION
  Report Type: 
  Country: None (occurrence: None)
  Receive Date: 20091014
  Receipt Date: 20091005
  Transmission Date: 20100525
  Serious: Yes (Disabling)
  Sender: FDA-Public Use
  Company Number: OSCN-NO-0909S-0422

PATIENT
  Age: 64 Year
  Sex: Male
  Weight: 79 kg

DRUGS (18)
  1. OMNISCAN [Suspect]
     Indication: DRUG USE FOR UNKNOWN INDICATION
     Dosage: 10 ML, I.V.
     Route: 042
     Dates: start: 20010607, end: 20010607
  2. GADOBUTROL (GADOVIST) [Suspect]
     Indication: DRUG USE FOR UNKNOWN INDICATION
     Dosage: 15 ML
     Dates: start: 20080221, end: 20080221
  3. ERYTHROPOIETIN (NEORECORMON) [Concomitant]
  4. CALCIUM ACETATE (PHOS-EX) [Concomitant]
  5. SACCHARATED IRON OXIDE (VENOFER) [Concomitant]
  6. CETIRIZINE (ALNOK) [Concomitant]
  7. INSULIN INSULATARD NPH NORDISK [Concomitant]
  8. PARACETAMOL (PINEX) [Concomitant]
  9. PLAVIX [Concomitant]
  10. CITALOPRAM (AKARIN) [Concomitant]
  11. FUROSEMIDE [Concomitant]
  12. PANTOPRAZOLE SODIUM [Concomitant]
  13. SIMVASTATIN [Concomitant]
  14. ZOPLCLONE (IMOCLONE) [Concomitant]
  15. GLYCERYL TRINITRATE [Concomitant]
  16. ISOSORBIDE MONONITRATE (ISODUR) [Concomitant]
  17. ACETYLSALICYLIC ACID (MAGNYL) [Concomitant]
  18. MIRTAZAPINE [Concomitant]

REACTIONS (7)
  - ACTIVITIES OF DAILY LIVING IMPAIRED [None]
  - ARTHRALGIA [None]
  - HAEMODIALYSIS [None]
  - MUSCULOSKELETAL PAIN [None]
  - NEPHROGENIC SYSTEMIC FIBROSIS [None]
  - PERITONITIS [None]
  - RENAL FAILURE [None]
